FAERS Safety Report 21984177 (Version 1)
Quarter: 2023Q1

REPORT INFORMATION
  Report Type: Spontaneous
  Country: CA (occurrence: CA)
  Receive Date: 20230213
  Receipt Date: 20230213
  Transmission Date: 20230418
  Serious: Yes (Other)
  Sender: FDA-Public Use
  Company Number: CA-002147023-NVSC2023CA027319

PATIENT
  Age: 66 Year
  Sex: Male

DRUGS (3)
  1. MYCOPHENOLIC ACID [Suspect]
     Active Substance: MYCOPHENOLIC ACID
     Indication: Glomerulonephritis membranous
     Dosage: UNK (NOT SPECIFIED)
     Route: 065
  2. COSYNTROPIN HEXAACETATE [Suspect]
     Active Substance: COSYNTROPIN HEXAACETATE
     Indication: Glomerulonephritis membranous
     Dosage: 2 DOSAGE FORM, QW (1 MG, SUSPENSION)
     Route: 030
  3. PREDNISONE [Suspect]
     Active Substance: PREDNISONE
     Indication: Glomerulonephritis membranous
     Dosage: UNK (NOT SPECIFIED)
     Route: 065

REACTIONS (5)
  - Depressed mood [Unknown]
  - Oedema [Unknown]
  - Fatigue [Unknown]
  - Dyspnoea [Unknown]
  - Hypokalaemia [Unknown]
